FAERS Safety Report 7580813 (Version 2)
Quarter: 2013Q3

REPORT INFORMATION
  Report Type: Spontaneous
  Country: FR (occurrence: FR)
  Receive Date: 20100910
  Receipt Date: 20130801
  Transmission Date: 20140515
  Serious: Yes (Hospitalization)
  Sender: FDA-Public Use
  Company Number: FR-BRISTOL-MYERS SQUIBB COMPANY-15275498

PATIENT
  Age: 63 Year
  Sex: Female

DRUGS (4)
  1. HYDREA CAPS 500 MG [Suspect]
     Indication: CHRONIC MYELOID LEUKAEMIA
     Dates: start: 2000
  2. TAHOR [Concomitant]
  3. LODOZ [Concomitant]
  4. APROVEL [Concomitant]

REACTIONS (3)
  - Gait disturbance [Recovered/Resolved]
  - Skin ulcer [Recovered/Resolved]
  - Pain [Recovered/Resolved]
